FAERS Safety Report 8443222-5 (Version None)
Quarter: 2012Q2

REPORT INFORMATION
  Report Type: 
  Country: None (occurrence: None)
  Receive Date: 20120617
  Receipt Date: 20120605
  Transmission Date: 20120825
  Serious: Yes (Other)
  Sender: FDA-Public Use
  Company Number: DK-TEVA-339645ISR

PATIENT
  Sex: Female

DRUGS (3)
  1. IMURAN [Concomitant]
  2. METHOTREXATE [Suspect]
     Indication: PULMONARY SARCOIDOSIS
     Route: 042
     Dates: start: 20080826, end: 20090120
  3. PREDNISOLONE [Concomitant]

REACTIONS (5)
  - BRONCHIECTASIS [None]
  - PNEUMONIA [None]
  - COUGH [None]
  - BRONCHITIS [None]
  - CHEST PAIN [None]
